FAERS Safety Report 10501605 (Version 1)
Quarter: 2014Q4

REPORT INFORMATION
  Report Type: Spontaneous
  Country: US (occurrence: None)
  Receive Date: 20141006
  Receipt Date: 20141006
  Transmission Date: 20150528
  Serious: Yes (Disabling)
  Sender: FDA-Public Use
  Company Number: None

PATIENT
  Age: 63 Year
  Sex: Female
  Weight: 106.6 kg

DRUGS (4)
  1. CICLESONIDE [Suspect]
     Active Substance: CICLESONIDE
     Indication: MULTIPLE ALLERGIES
     Dosage: 1OR 2SPRAYS ONCE DAILY INHALATION
     Route: 055
  2. CICLESONIDE [Suspect]
     Active Substance: CICLESONIDE
     Indication: NASAL DISORDER
     Dosage: 1OR 2SPRAYS ONCE DAILY INHALATION
     Route: 055
  3. CICLESONIDE [Suspect]
     Active Substance: CICLESONIDE
     Indication: ASTHMA
     Dosage: 1OR 2SPRAYS ONCE DAILY INHALATION
     Route: 055
  4. CICLESONIDE [Suspect]
     Active Substance: CICLESONIDE
     Indication: LUNG DISORDER
     Dosage: 1OR 2SPRAYS ONCE DAILY INHALATION
     Route: 055

REACTIONS (1)
  - Vasculitis [None]

NARRATIVE: CASE EVENT DATE: 20141003
